FAERS Safety Report 8900976 (Version 5)
Quarter: 2013Q1

REPORT INFORMATION
  Report Type: Report from Study
  Country: FR (occurrence: FR)
  Receive Date: 20121109
  Receipt Date: 20130311
  Transmission Date: 20140127
  Serious: Yes (Hospitalization, Other)
  Sender: FDA-Public Use
  Company Number: FR-CELGENEUS-056-50794-12110475

PATIENT
  Age: 80 None
  Sex: Male

DRUGS (6)
  1. VIDAZA [Suspect]
     Indication: MYELODYSPLASTIC SYNDROME
     Dosage: 135 MILLIGRAM
     Route: 058
     Dates: start: 20121031, end: 20121104
  2. VIDAZA [Suspect]
     Route: 065
     Dates: start: 201206
  3. VIDAZA [Suspect]
     Route: 065
  4. REVLIMID [Suspect]
     Indication: MYELODYSPLASTIC SYNDROME
     Route: 048
     Dates: start: 201206, end: 20120816
  5. EFFERALGAN CODEINE [Concomitant]
     Indication: PAIN
     Route: 048
  6. NOXAFIL [Concomitant]
     Indication: PRODUCT USED FOR UNKNOWN INDICATION
     Route: 065

REACTIONS (3)
  - Rash maculo-papular [Recovered/Resolved]
  - Rash maculo-papular [Recovered/Resolved]
  - Rash maculo-papular [Recovered/Resolved]
